FAERS Safety Report 6595194-6 (Version None)
Quarter: 2010Q1

REPORT INFORMATION
  Report Type: 
  Country: None (occurrence: None)
  Receive Date: 20100212
  Receipt Date: 20100203
  Transmission Date: 20100710
  Serious: Yes (Hospitalization)
  Sender: FDA-Public Use
  Company Number: WAES 0902USA02994

PATIENT
  Age: 35 Year
  Sex: Male
  Weight: 58.9676 kg

DRUGS (15)
  1. TAB MK-0518 UNK [Suspect]
     Indication: HIV INFECTION
     Dosage: 400 MG/BID/PO
     Route: 048
     Dates: start: 20090116, end: 20090209
  2. TAB MK-0518 UNK [Suspect]
     Indication: HIV INFECTION
     Dosage: 400 MG/BID/PO
     Route: 048
     Dates: start: 20090211
  3. TAB PREZISTA 400 MG [Suspect]
     Indication: HIV INFECTION
     Dosage: 800 MG/DAILY/PO
     Route: 048
     Dates: start: 20090116
  4. TAB PREDNISONE 4 MG [Suspect]
     Indication: RASH
     Dosage: 24 MG/DAILY/PO, 20 MG/DAILY/PO, 16 MG/DAILY/PO, 12 MG/DAILY/PO, 8 MG/DAILY/PO, 4 MG/DAILY/PO
     Route: 048
     Dates: start: 20090127, end: 20090127
  5. TAB PREDNISONE 4 MG [Suspect]
     Indication: RASH
     Dosage: 24 MG/DAILY/PO, 20 MG/DAILY/PO, 16 MG/DAILY/PO, 12 MG/DAILY/PO, 8 MG/DAILY/PO, 4 MG/DAILY/PO
     Route: 048
     Dates: start: 20090128, end: 20090128
  6. TAB PREDNISONE 4 MG [Suspect]
     Indication: RASH
     Dosage: 24 MG/DAILY/PO, 20 MG/DAILY/PO, 16 MG/DAILY/PO, 12 MG/DAILY/PO, 8 MG/DAILY/PO, 4 MG/DAILY/PO
     Route: 048
     Dates: start: 20090129, end: 20090129
  7. TAB PREDNISONE 4 MG [Suspect]
     Indication: RASH
     Dosage: 24 MG/DAILY/PO, 20 MG/DAILY/PO, 16 MG/DAILY/PO, 12 MG/DAILY/PO, 8 MG/DAILY/PO, 4 MG/DAILY/PO
     Route: 048
     Dates: start: 20090130, end: 20090130
  8. TAB PREDNISONE 4 MG [Suspect]
     Indication: RASH
     Dosage: 24 MG/DAILY/PO, 20 MG/DAILY/PO, 16 MG/DAILY/PO, 12 MG/DAILY/PO, 8 MG/DAILY/PO, 4 MG/DAILY/PO
     Route: 048
     Dates: start: 20090131, end: 20090131
  9. TAB PREDNISONE 4 MG [Suspect]
     Indication: RASH
     Dosage: 24 MG/DAILY/PO, 20 MG/DAILY/PO, 16 MG/DAILY/PO, 12 MG/DAILY/PO, 8 MG/DAILY/PO, 4 MG/DAILY/PO
     Route: 048
     Dates: start: 20090201, end: 20090201
  10. ASACOL [Concomitant]
  11. EPZICOM [Concomitant]
  12. MARINOL [Concomitant]
  13. NORVIR [Concomitant]
  14. AZITHROMYC [Concomitant]
  15. DAPSONE [Concomitant]

REACTIONS (10)
  - ACUTE PSYCHOSIS [None]
  - AGGRESSION [None]
  - AGITATION [None]
  - ATTENTION-SEEKING BEHAVIOUR [None]
  - FLIGHT OF IDEAS [None]
  - HALLUCINATION [None]
  - MANIA [None]
  - MENTAL STATUS CHANGES [None]
  - PRESSURE OF SPEECH [None]
  - ROAD TRAFFIC ACCIDENT [None]
